FAERS Safety Report 24302774 (Version 1)
Quarter: 2024Q3

REPORT INFORMATION
  Report Type: Spontaneous
  Country: US (occurrence: None)
  Receive Date: 20240909
  Receipt Date: 20240909
  Transmission Date: 20241017
  Serious: Yes (Hospitalization)
  Sender: Public
  Company Number: None

PATIENT
  Age: 79 Year
  Sex: Male

DRUGS (8)
  1. LENALIDOMIDE [Suspect]
     Active Substance: LENALIDOMIDE
     Indication: Plasma cell myeloma
     Dosage: 5MG DAILY X ORAL
     Route: 048
     Dates: start: 20240205, end: 20240818
  2. BORTEZOMIB [Concomitant]
     Active Substance: BORTEZOMIB
  3. DEXAMETHASONE [Concomitant]
  4. ATORVASTATIN [Concomitant]
  5. AMLODIPINE [Concomitant]
     Active Substance: AMLODIPINE BESYLATE
  6. ACYCLOVIR [Concomitant]
     Active Substance: ACYCLOVIR
  7. LEVETIRACETAM [Concomitant]
  8. GABAPENTIN [Concomitant]

REACTIONS (4)
  - Hypoxia [None]
  - Syncope [None]
  - Seizure [None]
  - Eosinophilic pneumonia [None]

NARRATIVE: CASE EVENT DATE: 20240818
